FAERS Safety Report 5305195-3 (Version None)
Quarter: 2007Q2

REPORT INFORMATION
  Report Type: 
  Country: None (occurrence: None)
  Receive Date: 20070417
  Receipt Date: 20070403
  Transmission Date: 20071010
  Serious: Yes (Hospitalization, Disabling)
  Sender: FDA-Public Use
  Company Number: DSA_27805_2006

PATIENT
  Age: 62 Year
  Sex: Male
  Weight: 86 kg

DRUGS (6)
  1. CARDIZEM LA [Suspect]
     Indication: TREMOR
     Dosage: 120 MG Q DAY PO
     Route: 048
     Dates: start: 20050613, end: 20050619
  2. ANDROGEL [Suspect]
     Indication: BLOOD TESTOSTERONE DECREASED
     Dosage: DF TD
     Dates: start: 20030101
  3. PERCOCET [Concomitant]
  4. ZOLOFT [Concomitant]
  5. DEPAKOTE [Concomitant]
  6. WELLBUTRIN [Concomitant]

REACTIONS (6)
  - ABASIA [None]
  - BALANCE DISORDER [None]
  - BRAIN DAMAGE [None]
  - CARDIAC ARREST [None]
  - HEART RATE DECREASED [None]
  - MEMORY IMPAIRMENT [None]
